FAERS Safety Report 24246579 (Version 1)
Quarter: 2024Q3

REPORT INFORMATION
  Report Type: Report from Study
  Country: CO (occurrence: CO)
  Receive Date: 20240825
  Receipt Date: 20240825
  Transmission Date: 20241017
  Serious: Yes (Other)
  Sender: ABBVIE
  Company Number: CO-ABBVIE-5891217

PATIENT
  Sex: Female
  Weight: 65 kg

DRUGS (1)
  1. SKYRIZI [Suspect]
     Active Substance: RISANKIZUMAB-RZAA
     Indication: Psoriasis
     Dosage: FORM STRENGTH: 150 MILIGRAM
     Route: 058
     Dates: start: 20221215

REACTIONS (11)
  - Vaginal haemorrhage [Recovered/Resolved]
  - Ovarian neoplasm [Unknown]
  - Alopecia [Not Recovered/Not Resolved]
  - Dry skin [Recovering/Resolving]
  - Nervousness [Recovered/Resolved]
  - Skin tightness [Recovering/Resolving]
  - Weight decreased [Not Recovered/Not Resolved]
  - Unevaluable event [Recovered/Resolved]
  - Drug ineffective [Unknown]
  - Pruritus [Recovering/Resolving]
  - Vaginal haemorrhage [Not Recovered/Not Resolved]

NARRATIVE: CASE EVENT DATE: 20220101
